FAERS Safety Report 6207751-7 (Version None)
Quarter: 2009Q2

REPORT INFORMATION
  Report Type: 
  Country: None (occurrence: None)
  Receive Date: 20090526
  Receipt Date: 20090512
  Transmission Date: 20091009
  Serious: Yes (Hospitalization)
  Sender: FDA-Public Use
  Company Number: 2009AP001937

PATIENT
  Age: 66 Year
  Sex: Male

DRUGS (5)
  1. TIMONIL   (CARBAMAZEPINE) [Suspect]
     Indication: EPILEPSY
     Dosage: 100 MG; QD PO, 100 MG; TAB; PO; QD
     Route: 048
  2. NEXIUM [Suspect]
     Dosage: 40 MG; BID PO
     Route: 048
  3. LISITRIL (LISINOPRIL) [Suspect]
     Dosage: 20 MG; BID PO
     Route: 048
  4. ASPIRIN [Concomitant]
  5. METOPROLOL TARTRATE [Concomitant]

REACTIONS (3)
  - DISTURBANCE IN ATTENTION [None]
  - HYPONATRAEMIA [None]
  - SOMNOLENCE [None]
